FAERS Safety Report 11574161 (Version 1)
Quarter: 2015Q3

REPORT INFORMATION
  Report Type: Spontaneous
  Country: IT (occurrence: IT)
  Receive Date: 20150930
  Receipt Date: 20150930
  Transmission Date: 20151125
  Serious: Yes (Hospitalization)
  Sender: FDA-Public Use
  Company Number: IT-ACCORD-033908

PATIENT
  Age: 24 Year
  Sex: Male

DRUGS (2)
  1. CLOTIAPINE [Suspect]
     Active Substance: CLOTHIAPINE
     Dosage: 80 MG TOTAL
     Route: 048
     Dates: start: 20150807, end: 20150807
  2. QUETIAPINE [Suspect]
     Active Substance: QUETIAPINE
     Route: 048
     Dates: start: 20150807, end: 20150807

REACTIONS (5)
  - Suicide attempt [Unknown]
  - Miosis [Recovering/Resolving]
  - Altered state of consciousness [Recovering/Resolving]
  - Drug abuse [Unknown]
  - Tachycardia [Recovering/Resolving]

NARRATIVE: CASE EVENT DATE: 20150807
